FAERS Safety Report 12438079 (Version 3)
Quarter: 2016Q2

REPORT INFORMATION
  Report Type: Report from Study
  Country: CN (occurrence: CN)
  Receive Date: 20160606
  Receipt Date: 20160620
  Transmission Date: 20160815
  Serious: Yes (Hospitalization)
  Sender: FDA-Public Use
  Company Number: CN-GLAXOSMITHKLINE-CN2016078184

PATIENT
  Age: 53 Year
  Sex: Male
  Weight: 65 kg

DRUGS (7)
  1. PHENOLPHTHALEIN TABLET [Concomitant]
     Indication: BENIGN PROSTATIC HYPERPLASIA
     Dosage: 0.2 G, QD
     Route: 048
     Dates: start: 20160520, end: 20160601
  2. UMECLIDINIUM BR+VILANTEROL TRIFENATATE [Suspect]
     Active Substance: UMECLIDINIUM BROMIDE\VILANTEROL TRIFENATATE
     Indication: CHRONIC OBSTRUCTIVE PULMONARY DISEASE
     Dosage: 1 PUFF(S), QD
     Route: 055
     Dates: start: 20150824
  3. AMINO ACIDS [Concomitant]
     Active Substance: AMINO ACIDS
     Indication: BENIGN PROSTATIC HYPERPLASIA
     Route: 042
     Dates: start: 20160520, end: 20160520
  4. GLYCERINE ENEMA [Concomitant]
     Indication: BENIGN PROSTATIC HYPERPLASIA
     Route: 054
     Dates: start: 20160520, end: 20160520
  5. LIDOCAINE. [Concomitant]
     Active Substance: LIDOCAINE
     Indication: BENIGN PROSTATIC HYPERPLASIA
     Dosage: 200 MG, QD
     Route: 008
     Dates: start: 20160520, end: 20160520
  6. CIMETIDINE [Concomitant]
     Active Substance: CIMETIDINE
     Indication: GASTRITIS
     Dosage: 0.8 G, QD
     Route: 042
     Dates: start: 20160520, end: 20160520
  7. AOXIKANG [Concomitant]
     Indication: GASTRITIS
     Route: 042
     Dates: start: 20160520, end: 20160520

REACTIONS (1)
  - Benign prostatic hyperplasia [Recovered/Resolved]

NARRATIVE: CASE EVENT DATE: 20160516
